FAERS Safety Report 7148677-4 (Version None)
Quarter: 2010Q4

REPORT INFORMATION
  Report Type: 
  Country: None (occurrence: None)
  Receive Date: 20101209
  Receipt Date: 20101130
  Transmission Date: 20110411
  Serious: Yes (Congenital Anomaly)
  Sender: FDA-Public Use
  Company Number: US-ROCHE-529314

PATIENT
  Sex: Male
  Weight: 3 kg

DRUGS (2)
  1. BEVACIZUMAB [Suspect]
     Indication: NON-SMALL CELL LUNG CANCER
     Dosage: UNK, UNK
     Route: 050
  2. ERLOTINIB [Suspect]
     Indication: NON-SMALL CELL LUNG CANCER

REACTIONS (2)
  - ADACTYLY [None]
  - DRUG EXPOSURE DURING PREGNANCY [None]
